FAERS Safety Report 7780668-2 (Version None)
Quarter: 2011Q3

REPORT INFORMATION
  Report Type: 
  Country: None (occurrence: None)
  Receive Date: 20110927
  Receipt Date: 20110303
  Transmission Date: 20111222
  Serious: No
  Sender: FDA-Public Use
  Company Number: US-BRISTOL-MYERS SQUIBB COMPANY-15587215

PATIENT
  Sex: Female

DRUGS (3)
  1. AVALIDE [Suspect]
  2. AVAPRO [Suspect]
  3. HYDROCHLOROTHIAZIDE [Suspect]

REACTIONS (2)
  - ALOPECIA [None]
  - PRURITUS [None]
